FAERS Safety Report 5344094-8 (Version None)
Quarter: 2007Q2

REPORT INFORMATION
  Report Type: 
  Country: None (occurrence: None)
  Receive Date: 20070604
  Receipt Date: 20070524
  Transmission Date: 20071010
  Serious: Yes (Death, Hospitalization)
  Sender: FDA-Public Use
  Company Number: B0472330A

PATIENT
  Age: 75 Year
  Sex: Female

DRUGS (3)
  1. AVANDIA [Suspect]
     Route: 048
     Dates: start: 20000101, end: 20060101
  2. GLICLAZIDE [Concomitant]
  3. ASPIRIN [Concomitant]

REACTIONS (6)
  - CARDIAC FAILURE [None]
  - CHEST DISCOMFORT [None]
  - DEATH [None]
  - EYE OEDEMA [None]
  - HIP SWELLING [None]
  - WEIGHT INCREASED [None]
